FAERS Safety Report 20783481 (Version 1)
Quarter: 2022Q2

REPORT INFORMATION
  Report Type: Report from Study
  Country: GB (occurrence: GB)
  Receive Date: 20220504
  Receipt Date: 20220504
  Transmission Date: 20220720
  Serious: Yes (Death, Other)
  Sender: FDA-Public Use
  Company Number: GB-PFIZER INC-202200647204

PATIENT

DRUGS (3)
  1. CISPLATIN [Suspect]
     Active Substance: CISPLATIN
     Indication: Biliary neoplasm
     Dosage: 25 MG/M2, CYCLIC
     Route: 042
  2. GEMCITABINE HYDROCHLORIDE [Suspect]
     Active Substance: GEMCITABINE HYDROCHLORIDE
     Indication: Biliary neoplasm
     Dosage: 1000 MG/M2, ON DAYS 1 AND 8 IN 21-DAY CYCLES
  3. MERESTINIB [Suspect]
     Active Substance: MERESTINIB
     Dosage: 80 MG, DAILY
     Route: 048

REACTIONS (1)
  - Pulmonary embolism [Fatal]
